FAERS Safety Report 16906314 (Version 2)
Quarter: 2019Q4

REPORT INFORMATION
  Report Type: Spontaneous
  Country: VN (occurrence: VN)
  Receive Date: 20191011
  Receipt Date: 20191016
  Transmission Date: 20200122
  Serious: No
  Sender: FDA-Public Use
  Company Number: VN-ROCHE-2412958

PATIENT
  Sex: Male

DRUGS (9)
  1. DOXORUBICIN [Suspect]
     Active Substance: DOXORUBICIN
     Indication: B-CELL LYMPHOMA
     Dosage: AS A PART OF R-CHOP REGIMEN
     Route: 065
     Dates: start: 20160620, end: 20161028
  2. VINCRISTINE [Suspect]
     Active Substance: VINCRISTINE
     Indication: B-CELL LYMPHOMA
     Dosage: AS A PART OF R-CHOP REGIMEN
     Route: 065
     Dates: start: 20160620, end: 20161028
  3. MABTHERA [Suspect]
     Active Substance: RITUXIMAB
     Indication: B-CELL LYMPHOMA RECURRENT
     Dosage: AS A PART OF RITUXIMAB - BENDAMUSTINE REGIMEN
     Route: 041
     Dates: start: 201712, end: 201805
  4. BENDAMUSTINE [Suspect]
     Active Substance: BENDAMUSTINE
     Indication: B-CELL LYMPHOMA RECURRENT
     Dosage: AS A PART OF RITUXIMAB - BENDAMUSTINE REGIMEN
     Route: 042
     Dates: start: 201712, end: 201805
  5. CYCLOPHOSPHAMIDE. [Suspect]
     Active Substance: CYCLOPHOSPHAMIDE
     Indication: B-CELL LYMPHOMA
     Dosage: AS A PART OF R-CHOP REGIMEN
     Route: 065
     Dates: start: 20160620, end: 20161028
  6. PREDNISONE. [Suspect]
     Active Substance: PREDNISONE
     Indication: B-CELL LYMPHOMA
     Dosage: AS A PART OF R-CHOP REGIMEN
     Route: 065
     Dates: start: 20160620, end: 20161028
  7. AMLODIPINE [Concomitant]
     Active Substance: AMLODIPINE BESYLATE
     Indication: HYPERTENSION
     Route: 048
  8. DIURETICS [Concomitant]
     Active Substance: UNSPECIFIED INGREDIENT
  9. MABTHERA [Suspect]
     Active Substance: RITUXIMAB
     Indication: B-CELL LYMPHOMA
     Dosage: AS A PART OF R-CHOP REGIMEN
     Route: 041
     Dates: start: 20160620, end: 20161028

REACTIONS (1)
  - Therapy partial responder [Unknown]
